FAERS Safety Report 15366701 (Version 1)
Quarter: 2018Q3

REPORT INFORMATION
  Report Type: Report from Study
  Country: JP (occurrence: JP)
  Receive Date: 20180910
  Receipt Date: 20180910
  Transmission Date: 20181010
  Serious: Yes (Other)
  Sender: FDA-Public Use
  Company Number: JP-UCBSA-2017006172

PATIENT
  Age: 47 Year
  Sex: Female

DRUGS (14)
  1. PREDONINE [Suspect]
     Active Substance: PREDNISOLONE
     Indication: RHEUMATOID ARTHRITIS
     Dosage: 10 MG DAILY
     Route: 048
     Dates: end: 20160516
  2. PREDONINE [Suspect]
     Active Substance: PREDNISOLONE
     Dosage: 7 MG DAILY
     Route: 048
     Dates: start: 20170807
  3. TAKEPRON [Concomitant]
     Active Substance: LANSOPRAZOLE
     Indication: PROPHYLAXIS
     Dosage: 15 MG, ONCE DAILY (QD)
     Route: 048
  4. PREDONINE [Suspect]
     Active Substance: PREDNISOLONE
     Dosage: 9 MG DAILY
     Route: 048
     Dates: start: 20160517, end: 20170522
  5. RHEUMATREX [Suspect]
     Active Substance: METHOTREXATE SODIUM
     Dosage: 12 MG, WEEKLY (QW)
     Route: 048
     Dates: start: 20171120
  6. PREDONINE [Suspect]
     Active Substance: PREDNISOLONE
     Dosage: 8 MG DAILY
     Route: 048
     Dates: start: 20170523, end: 20170806
  7. BONALON [Concomitant]
     Active Substance: ALENDRONATE SODIUM
     Indication: PROPHYLAXIS
     Dosage: 35 MG, ONCE DAILY (QD)
     Route: 048
  8. FOLIAMIN [Concomitant]
     Active Substance: FOLIC ACID
     Indication: PROPHYLAXIS
     Dosage: 5 MG, ONCE DAILY (QD)
     Route: 048
  9. IGURATIMOD [Concomitant]
     Active Substance: IGURATIMOD
     Indication: RHEUMATOID ARTHRITIS
     Dosage: 25 MG, ONCE DAILY (QD)
     Route: 048
     Dates: start: 20180129, end: 20180708
  10. CERTOLIZUMAB PEGOL RA [Suspect]
     Active Substance: CERTOLIZUMAB PEGOL
     Dosage: 200 MG, EV 2 WEEKS(QOW)
     Route: 058
     Dates: start: 20150907
  11. IGURATIMOD [Concomitant]
     Active Substance: IGURATIMOD
     Dosage: 50 MG, ONCE DAILY (QD)
     Dates: start: 20180709
  12. CERTOLIZUMAB PEGOL RA [Suspect]
     Active Substance: CERTOLIZUMAB PEGOL
     Indication: RHEUMATOID ARTHRITIS
     Dosage: 400 MG, EV 2 WEEKS(QOW)
     Route: 058
     Dates: start: 20150727, end: 20150824
  13. RHEUMATREX [Suspect]
     Active Substance: METHOTREXATE SODIUM
     Indication: RHEUMATOID ARTHRITIS
     Dosage: 8 MG, WEEKLY (QW)
     Route: 048
     Dates: end: 20170227
  14. RHEUMATREX [Suspect]
     Active Substance: METHOTREXATE SODIUM
     Dosage: 10 MG, WEEKLY (QW)
     Route: 048
     Dates: start: 20170228, end: 20171119

REACTIONS (2)
  - Upper respiratory tract infection [Recovered/Resolved]
  - Cellulitis [Recovered/Resolved]

NARRATIVE: CASE EVENT DATE: 20161017
